FAERS Safety Report 10753150 (Version 1)
Quarter: 2015Q1

REPORT INFORMATION
  Report Type: Spontaneous
  Country: US (occurrence: US)
  Receive Date: 20150130
  Receipt Date: 20150130
  Transmission Date: 20150721
  Serious: No
  Sender: FDA-Public Use
  Company Number: US-PFIZER INC-2015036382

PATIENT
  Age: 74 Year
  Sex: Female
  Weight: 80 kg

DRUGS (3)
  1. BUPROPION [Suspect]
     Active Substance: BUPROPION
     Indication: NON-CARDIAC CHEST PAIN
  2. FLAXSEED [Suspect]
     Active Substance: FLAX SEED
     Indication: DRY EYE
  3. CELEBREX [Suspect]
     Active Substance: CELECOXIB
     Dosage: 200 MG, 2X/DAY

REACTIONS (1)
  - Eye infection viral [Not Recovered/Not Resolved]

NARRATIVE: CASE EVENT DATE: 201410
